FAERS Safety Report 8906629 (Version 1)
Quarter: 2012Q4

REPORT INFORMATION
  Report Type: 
  Country: US (occurrence: US)
  Receive Date: 20121113
  Receipt Date: 20121113
  Transmission Date: 20130627
  Serious: No
  Sender: FDA-Public Use
  Company Number: US-AMGEN-USASP2012011033

PATIENT
  Age: 48 Year
  Sex: Male

DRUGS (2)
  1. ENBREL [Suspect]
     Indication: PSORIASIS
     Dosage: 25 mg, qwk
     Dates: start: 2007, end: 2009
  2. STELARA [Concomitant]

REACTIONS (4)
  - Influenza like illness [Recovered/Resolved]
  - Hypersensitivity [Recovered/Resolved]
  - Nasopharyngitis [Recovered/Resolved]
  - Psoriasis [Not Recovered/Not Resolved]
